FAERS Safety Report 21487457 (Version 1)
Quarter: 2022Q4

REPORT INFORMATION
  Report Type: Spontaneous
  Country: FR (occurrence: FR)
  Receive Date: 20221020
  Receipt Date: 20221020
  Transmission Date: 20230112
  Serious: Yes (Hospitalization, Other)
  Sender: FDA-Public Use
  Company Number: None

PATIENT
  Age: 84 Year
  Sex: Male
  Weight: 68 kg

DRUGS (3)
  1. OXYCODONE [Suspect]
     Active Substance: OXYCODONE
     Indication: Analgesic intervention supportive therapy
     Dosage: 15 MILLIGRAM, Q2D
     Route: 048
     Dates: start: 20220815, end: 20220818
  2. PREGABALIN [Suspect]
     Active Substance: PREGABALIN
     Indication: Analgesic intervention supportive therapy
     Dosage: 25 MILLIGRAM, Q2D
     Route: 048
     Dates: start: 20220815, end: 20220818
  3. OXYCODONE HYDROCHLORIDE [Suspect]
     Active Substance: OXYCODONE HYDROCHLORIDE
     Indication: Analgesic intervention supportive therapy
     Dosage: 5 MILLIGRAM, QD
     Route: 048
     Dates: start: 20220815, end: 20220818

REACTIONS (3)
  - Confusional state [Recovering/Resolving]
  - Acute kidney injury [Recovering/Resolving]
  - Myoclonus [Recovered/Resolved]

NARRATIVE: CASE EVENT DATE: 20220816
